FAERS Safety Report 6419284-3 (Version None)
Quarter: 2009Q4

REPORT INFORMATION
  Report Type: 
  Country: None (occurrence: None)
  Receive Date: 20091029
  Receipt Date: 20091026
  Transmission Date: 20100525
  Serious: Yes (Death)
  Sender: FDA-Public Use
  Company Number: PHHY2009BR46552

PATIENT
  Sex: Male

DRUGS (2)
  1. DIOVAN [Suspect]
  2. GALVUS [Suspect]

REACTIONS (1)
  - DEATH [None]
